FAERS Safety Report 12430185 (Version 1)
Quarter: 2016Q2

REPORT INFORMATION
  Report Type: Spontaneous
  Country: ES (occurrence: ES)
  Receive Date: 20160602
  Receipt Date: 20160602
  Transmission Date: 20160815
  Serious: Yes (Hospitalization)
  Sender: FDA-Public Use
  Company Number: PHHY2016ES070698

PATIENT
  Age: 7 Year
  Sex: Female

DRUGS (6)
  1. RISPERIDONE. [Concomitant]
     Active Substance: RISPERIDONE
     Indication: DEVELOPMENTAL DELAY
     Route: 065
  2. CEFOTAXIME [Suspect]
     Active Substance: CEFOTAXIME SODIUM
     Indication: PRODUCT USED FOR UNKNOWN INDICATION
     Route: 042
  3. EVEROLIMUS [Suspect]
     Active Substance: EVEROLIMUS
     Indication: TUBEROUS SCLEROSIS
     Route: 065
  4. CLINDAMYCIN [Suspect]
     Active Substance: CLINDAMYCIN\CLINDAMYCIN PHOSPHATE
     Indication: PRODUCT USED FOR UNKNOWN INDICATION
     Route: 042
  5. COTRIMOXAZOL [Suspect]
     Active Substance: SULFAMETHOXAZOLE\TRIMETHOPRIM
     Indication: PRODUCT USED FOR UNKNOWN INDICATION
     Route: 042
  6. RISPERIDONE. [Concomitant]
     Active Substance: RISPERIDONE
     Indication: AUTISM

REACTIONS (9)
  - Pneumonia mycoplasmal [Unknown]
  - Pleural effusion [Unknown]
  - Tachycardia [Unknown]
  - Aphthous ulcer [Unknown]
  - Septic shock [Unknown]
  - Hypotension [Unknown]
  - Pyrexia [Unknown]
  - Poor peripheral circulation [Unknown]
  - Oliguria [Unknown]
